FAERS Safety Report 22005939 (Version 1)
Quarter: 2023Q1

REPORT INFORMATION
  Report Type: Spontaneous
  Country: US (occurrence: US)
  Receive Date: 20230217
  Receipt Date: 20230217
  Transmission Date: 20230418
  Serious: Yes (Other)
  Sender: FDA-Public Use
  Company Number: US-ADC THERAPEUTICS-ADC-2022-000307

PATIENT
  Age: 89 Year
  Sex: Male

DRUGS (1)
  1. ZYNLONTA [Suspect]
     Active Substance: LONCASTUXIMAB TESIRINE-LPYL
     Indication: Product used for unknown indication

REACTIONS (3)
  - Pleural effusion [Unknown]
  - Weight increased [Unknown]
  - Oedema [Recovering/Resolving]
